FAERS Safety Report 8008859-6 (Version None)
Quarter: 2011Q4

REPORT INFORMATION
  Report Type: 
  Country: None (occurrence: None)
  Receive Date: 20111227
  Receipt Date: 20111216
  Transmission Date: 20120403
  Serious: Yes (Hospitalization, Other)
  Sender: FDA-Public Use
  Company Number: PHHY2011JP107715

PATIENT
  Age: 44 Year
  Sex: Female

DRUGS (10)
  1. CISPLATIN [Suspect]
     Indication: GASTRIC CANCER
     Dosage: 80 MG,
     Route: 041
     Dates: start: 20090601, end: 20100210
  2. FUROSEMIDE [Suspect]
     Indication: ASCITES
     Dosage: 20-40 MG,
     Dates: start: 20090601
  3. DICLOFENAC SODIUM [Concomitant]
     Dosage: 7.5 MG, UNK
     Route: 048
  4. SENNOSIDE [Concomitant]
     Dosage: 0.5 MG, UNK
     Route: 048
  5. ZOLEDRONIC [Suspect]
     Indication: METASTASES TO BONE
     Dosage: 4 MG, ONCE A MONTH
     Route: 041
     Dates: start: 20090601
  6. TS 1 [Concomitant]
     Indication: GASTRIC CANCER
     Dosage: 100 MG, UNK
     Route: 048
  7. ESTAZOLAM [Concomitant]
     Dosage: 2 MG, UNK
     Route: 048
  8. CISPLATIN [Suspect]
     Dosage: 80 MG
     Route: 041
     Dates: start: 20100223
  9. SPIRONOLACTONE [Concomitant]
     Dosage: 25 MG, UNK
     Route: 048
  10. OMEPRAZOLE [Concomitant]
     Dosage: 20 MG, UNK
     Route: 048

REACTIONS (17)
  - NORMOCHROMIC NORMOCYTIC ANAEMIA [None]
  - CONJUNCTIVAL PALLOR [None]
  - METABOLIC ALKALOSIS [None]
  - DEHYDRATION [None]
  - BLOOD PRESSURE DECREASED [None]
  - MALAISE [None]
  - HYPOKALAEMIA [None]
  - ELECTROCARDIOGRAM QT PROLONGED [None]
  - BONE MARROW FAILURE [None]
  - RENAL TUBULAR DISORDER [None]
  - HYPOPHOSPHATAEMIA [None]
  - RENAL IMPAIRMENT [None]
  - HYPOCALCAEMIA [None]
  - HYPOMAGNESAEMIA [None]
  - NAUSEA [None]
  - ELECTROLYTE IMBALANCE [None]
  - DECREASED APPETITE [None]
